FAERS Safety Report 6757959-7 (Version None)
Quarter: 2010Q2

REPORT INFORMATION
  Report Type: 
  Country: None (occurrence: None)
  Receive Date: 20100602
  Receipt Date: 20100517
  Transmission Date: 20101027
  Serious: Yes (Death)
  Sender: FDA-Public Use
  Company Number: 2010AC000445

PATIENT
  Age: 52 Year
  Sex: Male

DRUGS (9)
  1. DIGOXIN [Suspect]
     Dates: start: 20030101
  2. PACERONE [Concomitant]
  3. FUROSEMIDE [Concomitant]
  4. TOPROL-XL [Concomitant]
  5. POTASSIUM [Concomitant]
  6. ASPIRIN [Concomitant]
  7. ALLOPURINOL [Concomitant]
  8. LANTUS [Concomitant]
  9. BENICAR [Concomitant]

REACTIONS (3)
  - INFLUENZA LIKE ILLNESS [None]
  - LOSS OF CONSCIOUSNESS [None]
  - MYOCARDIAL INFARCTION [None]
